FAERS Safety Report 4942430-5 (Version None)
Quarter: 2006Q1

REPORT INFORMATION
  Report Type: 
  Country: None (occurrence: None)
  Receive Date: 20060313
  Receipt Date: 20050208
  Transmission Date: 20060701
  Serious: No
  Sender: FDA-Public Use
  Company Number: US-GLAXOSMITHKLINE-A0544485A

PATIENT
  Age: 26 Year
  Sex: Male

DRUGS (1)
  1. EQUATE NICOTINE GUM 2MG [Suspect]
     Dates: start: 20050205, end: 20050205

REACTIONS (2)
  - DYSPNOEA [None]
  - THROAT TIGHTNESS [None]
